FAERS Safety Report 7127406-4 (Version None)
Quarter: 2010Q4

REPORT INFORMATION
  Report Type: 
  Country: None (occurrence: None)
  Receive Date: 20101129
  Receipt Date: 20091019
  Transmission Date: 20110411
  Serious: No
  Sender: FDA-Public Use
  Company Number: US-PFIZER INC-2009260851

PATIENT
  Sex: Female

DRUGS (17)
  1. REVATIO [Suspect]
     Indication: PULMONARY HYPERTENSION
     Dosage: 20 MG, 3X/DAY
     Dates: start: 20070618, end: 20090615
  2. MONTELUKAST [Concomitant]
  3. LASIX [Concomitant]
  4. ZYRTEC [Concomitant]
  5. K-DUR [Concomitant]
  6. ALBUTEROL [Concomitant]
  7. NEXIUM [Concomitant]
  8. CRESTOR [Concomitant]
  9. LEXAPRO [Concomitant]
  10. MOBIC [Concomitant]
  11. SPIRIVA [Concomitant]
  12. OSCAL [Concomitant]
  13. ACETYLSALICYLIC ACID [Concomitant]
  14. MIRALAX [Concomitant]
  15. FERROUS FUMARATE [Concomitant]
  16. AMBRISENTAN [Concomitant]
  17. CICLESONIDE [Concomitant]

REACTIONS (2)
  - HYPERHIDROSIS [None]
  - VISION BLURRED [None]
